FAERS Safety Report 9833540 (Version 1)
Quarter: 2014Q1

REPORT INFORMATION
  Report Type: Report from Study
  Country: BR (occurrence: BR)
  Receive Date: 20140122
  Receipt Date: 20140122
  Transmission Date: 20141002
  Serious: Yes (Hospitalization)
  Sender: FDA-Public Use
  Company Number: BR-ROCHE-1335544

PATIENT
  Sex: Female
  Weight: 70 kg

DRUGS (3)
  1. MABTHERA [Suspect]
     Indication: PRODUCT USED FOR UNKNOWN INDICATION
     Dosage: LATEST INFUSION WAS ON 20/AUG/2013.
     Route: 065
     Dates: start: 20121024
  2. PREDNISONE [Concomitant]
  3. DICLOFENAC SODIUM [Concomitant]

REACTIONS (2)
  - Femur fracture [Unknown]
  - Fall [Unknown]
